FAERS Safety Report 10725845 (Version 2)
Quarter: 2015Q1

REPORT INFORMATION
  Report Type: Spontaneous
  Country: FR (occurrence: None)
  Receive Date: 20150116
  Receipt Date: 20150116
  Transmission Date: 20150721
  Serious: Yes (Hospitalization, Other)
  Sender: FDA-Public Use
  Company Number: ADR-2015-00074

PATIENT
  Sex: Male

DRUGS (2)
  1. BACLOFEN. [Suspect]
     Active Substance: BACLOFEN
     Indication: SEDATION
  2. BACLOFEN. [Suspect]
     Active Substance: BACLOFEN
     Indication: ANXIOLYTIC THERAPY

REACTIONS (2)
  - Drug withdrawal syndrome [None]
  - Drug abuse [None]
